FAERS Safety Report 24849786 (Version 1)
Quarter: 2025Q1

REPORT INFORMATION
  Report Type: Spontaneous
  Country: US (occurrence: US)
  Receive Date: 20250116
  Receipt Date: 20250116
  Transmission Date: 20250409
  Serious: No
  Sender: NOVARTIS
  Company Number: US-002147023-NVSC2025US007204

PATIENT
  Sex: Male

DRUGS (5)
  1. TAFINLAR [Suspect]
     Active Substance: DABRAFENIB MESYLATE
     Indication: Basal cell carcinoma
     Dosage: 150 MG, Q12H
     Route: 048
     Dates: start: 202411
  2. TAFINLAR [Suspect]
     Active Substance: DABRAFENIB MESYLATE
     Route: 065
     Dates: start: 20250112
  3. MEKINIST [Suspect]
     Active Substance: TRAMETINIB DIMETHYL SULFOXIDE
     Indication: Product used for unknown indication
     Dosage: 2 MG, QD
     Route: 048
     Dates: start: 202411
  4. BENADRYL [Concomitant]
     Active Substance: DIPHENHYDRAMINE HYDROCHLORIDE
     Indication: Product used for unknown indication
     Route: 065
  5. PREDNISONE [Concomitant]
     Active Substance: PREDNISONE
     Indication: Product used for unknown indication
     Route: 065

REACTIONS (5)
  - Pain in extremity [Unknown]
  - Pain [Unknown]
  - Rash [Unknown]
  - Pyrexia [Unknown]
  - Swelling [Unknown]
